FAERS Safety Report 25059306 (Version 1)
Quarter: 2025Q1

REPORT INFORMATION
  Report Type: Spontaneous
  Country: CH (occurrence: GE)
  Receive Date: 20250310
  Receipt Date: 20250310
  Transmission Date: 20250409
  Serious: Yes (Hospitalization)
  Sender: MYLAN
  Company Number: CH-MYLANLABS-2025M1020307

PATIENT
  Age: 32 Year
  Sex: Male

DRUGS (9)
  1. PRETOMANID [Suspect]
     Active Substance: PRETOMANID
     Indication: Pulmonary tuberculosis
  2. LEVOFLOXACIN [Suspect]
     Active Substance: LEVOFLOXACIN
     Indication: Pulmonary tuberculosis
  3. BEDAQUILINE [Suspect]
     Active Substance: BEDAQUILINE
     Indication: Pulmonary tuberculosis
  4. DELAMANID [Suspect]
     Active Substance: DELAMANID
     Indication: Pulmonary tuberculosis
  5. AMINOSALICYLIC ACID [Suspect]
     Active Substance: AMINOSALICYLIC ACID
     Indication: Pulmonary tuberculosis
  6. LINEZOLID [Concomitant]
     Active Substance: LINEZOLID
     Indication: Pulmonary tuberculosis
  7. LINEZOLID [Concomitant]
     Active Substance: LINEZOLID
  8. MEROPENEM [Concomitant]
     Active Substance: MEROPENEM
     Indication: Pulmonary tuberculosis
  9. CLAVULANIC ACID [Concomitant]
     Active Substance: CLAVULANIC ACID
     Indication: Pulmonary tuberculosis

REACTIONS (1)
  - Treatment failure [Unknown]
